FAERS Safety Report 8142496-8 (Version None)
Quarter: 2012Q1

REPORT INFORMATION
  Report Type: 
  Country: None (occurrence: None)
  Receive Date: 20120216
  Receipt Date: 20120212
  Transmission Date: 20120608
  Serious: Yes (Hospitalization)
  Sender: FDA-Public Use
  Company Number: IL-ROCHE-1027396

PATIENT
  Age: 60 Year
  Sex: Male

DRUGS (4)
  1. VEMURAFENIB [Suspect]
     Dates: start: 20120104
  2. BEZAFIBRATE [Concomitant]
     Route: 065
  3. VEMURAFENIB [Suspect]
     Indication: METASTATIC MALIGNANT MELANOMA
     Dosage: PILL  ; DATE OF LAST DOSE PRIOR TO SAE : 29/DEC/2011
     Route: 048
     Dates: start: 20110825, end: 20111229
  4. ASPIRIN [Concomitant]
     Route: 065

REACTIONS (1)
  - PERICARDITIS [None]
